FAERS Safety Report 8488588-5 (Version None)
Quarter: 2012Q3

REPORT INFORMATION
  Report Type: 
  Country: None (occurrence: None)
  Receive Date: 20120705
  Receipt Date: 20120627
  Transmission Date: 20120928
  Serious: Yes (Hospitalization, Other)
  Sender: FDA-Public Use
  Company Number: PHHY2012FR027157

PATIENT
  Sex: Male

DRUGS (2)
  1. TYSABRI [Suspect]
     Indication: MULTIPLE SCLEROSIS
     Dosage: 1 DF, QMO
     Route: 042
     Dates: start: 20070101, end: 20110801
  2. GILENYA [Suspect]
     Indication: MULTIPLE SCLEROSIS
     Dosage: 0.5 MG, QD
     Route: 048
     Dates: start: 20120117, end: 20120301

REACTIONS (17)
  - GAIT DISTURBANCE [None]
  - SENSORY DISTURBANCE [None]
  - EXTENSOR PLANTAR RESPONSE [None]
  - SLEEP DISORDER [None]
  - POLLAKIURIA [None]
  - ALANINE AMINOTRANSFERASE INCREASED [None]
  - VISUAL ACUITY REDUCED [None]
  - ELECTROENCEPHALOGRAM ABNORMAL [None]
  - IMMUNOGLOBULINS ABNORMAL [None]
  - WEIGHT DECREASED [None]
  - HYPERREFLEXIA [None]
  - PROGRESSIVE MULTIFOCAL LEUKOENCEPHALOPATHY [None]
  - ASTHENIA [None]
  - CENTRAL NERVOUS SYSTEM LESION [None]
  - ASPARTATE AMINOTRANSFERASE INCREASED [None]
  - LYMPHOPENIA [None]
  - GAMMA-GLUTAMYLTRANSFERASE INCREASED [None]
